FAERS Safety Report 4366434-9 (Version None)
Quarter: 2004Q2

REPORT INFORMATION
  Report Type: 
  Country: None (occurrence: None)
  Receive Date: 20040527
  Receipt Date: 20040322
  Transmission Date: 20050107
  Serious: No
  Sender: FDA-Public Use
  Company Number: US-BRISTOL-MYERS SQUIBB COMPANY-12539896

PATIENT
  Age: 76 Year
  Sex: Male

DRUGS (11)
  1. ERBITUX [Suspect]
     Indication: COLON CANCER
     Route: 042
     Dates: start: 20040312, end: 20040312
  2. ISORBID [Concomitant]
  3. ASPIRIN [Concomitant]
  4. MULTI-VITAMIN [Concomitant]
  5. ZOCOR [Concomitant]
  6. ZYRTEC [Concomitant]
  7. ZETIA [Concomitant]
  8. AMARYL [Concomitant]
  9. FLONASE [Concomitant]
  10. NASACORT [Concomitant]
  11. COZAAR [Concomitant]

REACTIONS (2)
  - PRURITUS [None]
  - RASH [None]
